FAERS Safety Report 10410104 (Version 1)
Quarter: 2014Q3

REPORT INFORMATION
  Report Type: Spontaneous
  Country: CO (occurrence: CO)
  Receive Date: 20140826
  Receipt Date: 20140826
  Transmission Date: 20150326
  Serious: Yes (Hospitalization, Other)
  Sender: FDA-Public Use
  Company Number: CO-BRISTOL-MYERS SQUIBB COMPANY-21310511

PATIENT
  Age: 78 Year
  Sex: Female

DRUGS (3)
  1. NON-MEDICINAL PRODUCT [Interacting]
     Active Substance: UNSPECIFIED INGREDIENT
  2. COUMADIN [Suspect]
     Active Substance: WARFARIN SODIUM
     Indication: ATRIAL FIBRILLATION
     Route: 048
     Dates: start: 20140807
  3. ENOXAPARIN [Interacting]
     Active Substance: ENOXAPARIN
     Indication: ATRIAL FIBRILLATION
     Route: 058
     Dates: start: 20140807, end: 20140813

REACTIONS (4)
  - Drug interaction [Unknown]
  - Pulmonary oedema [Unknown]
  - Drug ineffective [Unknown]
  - Food interaction [Unknown]
